FAERS Safety Report 8188734-7 (Version None)
Quarter: 2012Q1

REPORT INFORMATION
  Report Type: 
  Country: None (occurrence: None)
  Receive Date: 20120306
  Receipt Date: 20120217
  Transmission Date: 20120608
  Serious: Yes (Other)
  Sender: FDA-Public Use
  Company Number: CHPA2012CA003288

PATIENT
  Age: 48 Year
  Sex: Male

DRUGS (1)
  1. OTRIVIN [Suspect]
     Indication: NASAL CONGESTION
     Dosage: UNK, PRN
     Route: 045
     Dates: end: 20120101

REACTIONS (2)
  - INSOMNIA [None]
  - DRUG DEPENDENCE [None]
